FAERS Safety Report 8887652 (Version 1)
Quarter: 2012Q4

REPORT INFORMATION
  Report Type: 
  Country: AU (occurrence: AU)
  Receive Date: 20121105
  Receipt Date: 20121105
  Transmission Date: 20130627
  Serious: Yes (Hospitalization)
  Sender: FDA-Public Use
  Company Number: AU-MYLANLABS-2012S1022090

PATIENT
  Age: 31 Year
  Sex: Male

DRUGS (4)
  1. FLUOROURACIL [Suspect]
     Indication: COLORECTAL CANCER
     Dosage: 400 mg/m2
     Route: 065
  2. FLUOROURACIL [Suspect]
     Indication: COLORECTAL CANCER
     Dosage: 2400 mg/m2 infused over 46 hours
     Route: 065
  3. FOLINIC ACID [Concomitant]
     Indication: COLORECTAL CANCER
     Dosage: 50 mg
     Route: 065
  4. OXALIPLATIN [Concomitant]
     Indication: COLORECTAL CANCER
     Dosage: 85 mg/m2
     Route: 065

REACTIONS (1)
  - Myocardial infarction [Recovered/Resolved]
